FAERS Safety Report 9224417 (Version 1)
Quarter: 2013Q1

REPORT INFORMATION
  Report Type: Spontaneous
  Country: US (occurrence: None)
  Receive Date: 20120917
  Receipt Date: 20120917
  Transmission Date: 20140127
  Serious: Yes (Other)
  Sender: FDA-Public Use
  Company Number: 2012SP014074

PATIENT
  Sex: Female

DRUGS (1)
  1. IMPLANON (68 MG) [Suspect]
     Indication: CONTRACEPTION
     Dosage: 68MG; SBDE
     Route: 050

REACTIONS (1)
  - Cerebrovascular accident [None]
